FAERS Safety Report 4481008-7 (Version None)
Quarter: 2004Q3

REPORT INFORMATION
  Report Type: 
  Country: None (occurrence: None)
  Receive Date: 20040923
  Receipt Date: 20040602
  Transmission Date: 20050211
  Serious: Yes (Other)
  Sender: FDA-Public Use
  Company Number: USA040669052

PATIENT
  Age: 61 Year
  Sex: Female
  Weight: 72 kg

DRUGS (9)
  1. EVISTA [Suspect]
     Indication: OSTEOPOROSIS
  2. FORTEO [Suspect]
     Indication: OSTEOPOROSIS
     Dosage: 20 UG/1 DAY
     Dates: start: 20040527
  3. BEXTRA [Concomitant]
  4. PERCOCET [Concomitant]
  5. CALTRATE (CALCIUKM CARBONATE) [Concomitant]
  6. GLUCOSAMINE [Concomitant]
  7. ATIVAN [Concomitant]
  8. MIACALCIN [Concomitant]
  9. ACTONEL [Concomitant]

REACTIONS (4)
  - BURNING SENSATION [None]
  - INCREASED TENDENCY TO BRUISE [None]
  - NAUSEA [None]
  - PAIN IN EXTREMITY [None]
